FAERS Safety Report 18482696 (Version 2)
Quarter: 2023Q1

REPORT INFORMATION
  Report Type: Report from Study
  Country: CA (occurrence: CA)
  Receive Date: 20201110
  Receipt Date: 20230304
  Transmission Date: 20230418
  Serious: Yes (Hospitalization)
  Sender: FDA-Public Use
  Company Number: CA-ABBVIE-20K-028-3231956-00

PATIENT
  Age: 48 Year
  Sex: Female

DRUGS (2)
  1. HUMIRA [Suspect]
     Active Substance: ADALIMUMAB
     Indication: Hidradenitis
     Route: 058
  2. HUMIRA [Suspect]
     Active Substance: ADALIMUMAB
     Route: 058
     Dates: start: 20170607, end: 201912

REACTIONS (9)
  - Lethargy [Unknown]
  - Lymphadenitis [Unknown]
  - Organising pneumonia [Unknown]
  - Pneumonia [Recovered/Resolved]
  - Oxygen saturation decreased [Recovered/Resolved]
  - Hidradenitis [Not Recovered/Not Resolved]
  - Injection site bruising [Unknown]
  - Influenza [Unknown]
  - Foot fracture [Unknown]

NARRATIVE: CASE EVENT DATE: 20191201
